FAERS Safety Report 7762306-8 (Version None)
Quarter: 2011Q3

REPORT INFORMATION
  Report Type: 
  Country: None (occurrence: None)
  Receive Date: 20110920
  Receipt Date: 20110914
  Transmission Date: 20111222
  Serious: Yes (Hospitalization)
  Sender: FDA-Public Use
  Company Number: DE-ROCHE-802811

PATIENT
  Sex: Male
  Weight: 89 kg

DRUGS (2)
  1. RIBAVIRIN [Suspect]
     Route: 065
     Dates: start: 20100419, end: 20110325
  2. PEGINTERFERON ALFA-2A [Suspect]
     Route: 058
     Dates: start: 20100419, end: 20110318

REACTIONS (3)
  - CHRONIC OBSTRUCTIVE PULMONARY DISEASE [None]
  - PNEUMONIA PNEUMOCOCCAL [None]
  - INFECTION [None]
